FAERS Safety Report 10056349 (Version 1)
Quarter: 2014Q2

REPORT INFORMATION
  Report Type: Spontaneous
  Country: US (occurrence: US)
  Receive Date: 20140403
  Receipt Date: 20140403
  Transmission Date: 20141212
  Serious: No
  Sender: FDA-Public Use
  Company Number: US-GILEAD-2014-0098395

PATIENT
  Age: 60 Year
  Sex: Female

DRUGS (15)
  1. LETAIRIS [Suspect]
     Indication: PULMONARY HYPERTENSION
     Dosage: 5 MG, UNK
     Route: 065
     Dates: end: 20140220
  2. LETAIRIS [Suspect]
     Dosage: 10 MG, QD
     Route: 065
     Dates: start: 20140221, end: 20140225
  3. LETAIRIS [Suspect]
     Dosage: 5 MG, QD
     Route: 065
     Dates: start: 20140226
  4. ORENCIA [Concomitant]
  5. FUROSEMIDE [Concomitant]
  6. WARFARIN [Concomitant]
  7. CYANOCOBALAMIN [Concomitant]
  8. FOLIC ACID [Concomitant]
  9. POTASSIUM [Concomitant]
  10. FISH OIL [Concomitant]
  11. VITAMIN D NOS [Concomitant]
  12. SYNTHROID [Concomitant]
  13. MUCINEX [Concomitant]
  14. ALLOPURINOL [Concomitant]
  15. KLOR-CON [Concomitant]

REACTIONS (2)
  - Migraine [Recovered/Resolved]
  - Visual impairment [Unknown]
